FAERS Safety Report 18364205 (Version 2)
Quarter: 2020Q4

REPORT INFORMATION
  Report Type: Spontaneous
  Country: US (occurrence: US)
  Receive Date: 20201009
  Receipt Date: 20201009
  Transmission Date: 20210114
  Serious: Yes (Hospitalization, Other)
  Sender: FDA-Public Use
  Company Number: US-ASTRAZENECA-2020SF28960

PATIENT
  Sex: Female
  Weight: 85.3 kg

DRUGS (7)
  1. BRILINTA [Suspect]
     Active Substance: TICAGRELOR
     Indication: STENT PLACEMENT
     Route: 048
     Dates: start: 201908, end: 20200928
  2. VALSARTAN. [Concomitant]
     Active Substance: VALSARTAN
  3. BABY ASPIRIN [Concomitant]
     Active Substance: ASPIRIN
  4. VITAMIN D [Concomitant]
     Active Substance: VITAMIN D NOS
  5. METFORMIN [Concomitant]
     Active Substance: METFORMIN HYDROCHLORIDE
  6. CRESTOR [Suspect]
     Active Substance: ROSUVASTATIN CALCIUM
     Route: 048
  7. SYNTHROID [Concomitant]
     Active Substance: LEVOTHYROXINE SODIUM
     Dosage: 100 DAILY

REACTIONS (9)
  - Contusion [Unknown]
  - Haemoglobin decreased [Unknown]
  - Weight decreased [Unknown]
  - Dyspnoea exertional [Unknown]
  - Arthralgia [Unknown]
  - Dyspnoea [Unknown]
  - Vascular occlusion [Unknown]
  - Blood creatine phosphokinase increased [Recovering/Resolving]
  - Rash [Recovered/Resolved]
